FAERS Safety Report 5376976-5 (Version None)
Quarter: 2007Q2

REPORT INFORMATION
  Report Type: 
  Country: None (occurrence: None)
  Receive Date: 20070628
  Receipt Date: 20070628
  Transmission Date: 20071010
  Serious: Yes (Life-Threatening, Other)
  Sender: FDA-Public Use
  Company Number: None

PATIENT
  Sex: Female
  Weight: 90.7194 kg

DRUGS (1)
  1. CYTOTEC [Suspect]
     Indication: LABOUR INDUCTION
     Dosage: 25 MG -WAS TOLD BY NURSE-  GIVEN ONE PO
     Route: 048
     Dates: start: 20060328, end: 20060328

REACTIONS (10)
  - BLOOD PRESSURE DECREASED [None]
  - HAEMORRHAGE [None]
  - INFECTION [None]
  - LOSS OF CONSCIOUSNESS [None]
  - MILK ALLERGY [None]
  - NECROTISING ENTEROCOLITIS NEONATAL [None]
  - NEONATAL DISORDER [None]
  - POSTPARTUM HAEMORRHAGE [None]
  - RECTAL HAEMORRHAGE [None]
  - UTERINE HAEMORRHAGE [None]
